FAERS Safety Report 6851895-3 (Version None)
Quarter: 2010Q3

REPORT INFORMATION
  Report Type: 
  Country: None (occurrence: None)
  Receive Date: 20100717
  Receipt Date: 20071101
  Transmission Date: 20110219
  Serious: No
  Sender: FDA-Public Use
  Company Number: US-PFIZER INC-2007093777

PATIENT
  Sex: Male
  Weight: 102.27 kg

DRUGS (5)
  1. CHANTIX [Suspect]
     Indication: SMOKING CESSATION THERAPY
     Dates: start: 20070101
  2. NEURONTIN [Concomitant]
  3. TRAZODONE HYDROCHLORIDE [Concomitant]
     Indication: SLEEP DISORDER
  4. PERCOCET [Concomitant]
  5. VIAGRA [Concomitant]

REACTIONS (1)
  - INSOMNIA [None]
